FAERS Safety Report 5910628-5 (Version None)
Quarter: 2008Q4

REPORT INFORMATION
  Report Type: 
  Country: None (occurrence: None)
  Receive Date: 20081007
  Receipt Date: 20080925
  Transmission Date: 20090506
  Serious: Yes (Other)
  Sender: FDA-Public Use
  Company Number: CA-JNJFOC-20080906468

PATIENT
  Age: 38 Year
  Sex: Female

DRUGS (2)
  1. MONISTAT 3 [Suspect]
     Route: 067
  2. MONISTAT 3 [Suspect]
     Indication: HORMONE LEVEL ABNORMAL
     Route: 067

REACTIONS (1)
  - HYPERSENSITIVITY [None]
